FAERS Safety Report 7735267-5 (Version None)
Quarter: 2011Q3

REPORT INFORMATION
  Report Type: 
  Country: None (occurrence: None)
  Receive Date: 20110907
  Receipt Date: 20110524
  Transmission Date: 20111222
  Serious: No
  Sender: FDA-Public Use
  Company Number: US-BAYER-2011-045762

PATIENT
  Sex: Female

DRUGS (1)
  1. MIRENA [Suspect]
     Indication: CONTRACEPTION
     Dosage: 20 MCG/24HR, CONT
     Route: 015
     Dates: start: 20091201

REACTIONS (11)
  - COITAL BLEEDING [None]
  - ARTHRALGIA [None]
  - TREMOR [None]
  - MENSTRUATION IRREGULAR [None]
  - DEVICE DEPLOYMENT ISSUE [None]
  - ABDOMINAL PAIN [None]
  - HYPOMENORRHOEA [None]
  - DYSMENORRHOEA [None]
  - BLOOD URINE PRESENT [None]
  - MEDICAL DEVICE PAIN [None]
  - METRORRHAGIA [None]
